FAERS Safety Report 6879331-1 (Version None)
Quarter: 2010Q3

REPORT INFORMATION
  Report Type: 
  Country: None (occurrence: None)
  Receive Date: 20100728
  Receipt Date: 20100715
  Transmission Date: 20110219
  Serious: Yes (Congenital Anomaly)
  Sender: FDA-Public Use
  Company Number: US-JNJFOC-20100705117

PATIENT

DRUGS (1)
  1. RISPERDAL CONSTA [Suspect]
     Indication: DRUG EXPOSURE DURING PREGNANCY
     Route: 064

REACTIONS (2)
  - ANAL ATRESIA [None]
  - ATRIOVENTRICULAR SEPTAL DEFECT [None]
